FAERS Safety Report 9899258 (Version 1)
Quarter: 2014Q1

REPORT INFORMATION
  Report Type: Spontaneous
  Country: US (occurrence: US)
  Receive Date: 20140214
  Receipt Date: 20140214
  Transmission Date: 20141002
  Serious: No
  Sender: FDA-Public Use
  Company Number: US-TEVA-463173USA

PATIENT
  Age: 19 Year
  Sex: Female
  Weight: 81.72 kg

DRUGS (2)
  1. PLAN B ONE-STEP [Suspect]
     Indication: POST COITAL CONTRACEPTION
     Dosage: 1.5 MILLIGRAM DAILY;
     Route: 048
     Dates: start: 20140105, end: 20140105
  2. ORTHO [Concomitant]
     Indication: ORAL CONTRACEPTION
     Route: 048

REACTIONS (2)
  - Metrorrhagia [Recovered/Resolved]
  - Menstruation irregular [Not Recovered/Not Resolved]
